FAERS Safety Report 22155730 (Version 6)
Quarter: 2025Q1

REPORT INFORMATION
  Report Type: Report from Study
  Country: CA (occurrence: CA)
  Receive Date: 20230330
  Receipt Date: 20250121
  Transmission Date: 20250408
  Serious: Yes (Hospitalization, Other)
  Sender: TAKEDA
  Company Number: CA-TAKEDA-2023TUS030360

PATIENT
  Sex: Female
  Weight: 86 kg

DRUGS (9)
  1. VEDOLIZUMAB [Suspect]
     Active Substance: VEDOLIZUMAB
     Indication: Crohn^s disease
  2. VEDOLIZUMAB [Suspect]
     Active Substance: VEDOLIZUMAB
  3. VEDOLIZUMAB [Suspect]
     Active Substance: VEDOLIZUMAB
  4. VEDOLIZUMAB [Suspect]
     Active Substance: VEDOLIZUMAB
  5. SYNTHROID [Concomitant]
     Active Substance: LEVOTHYROXINE SODIUM
     Dosage: 75 MICROGRAM, QD
  6. ZOLOFT [Concomitant]
     Active Substance: SERTRALINE HYDROCHLORIDE
     Indication: Depression
     Dosage: 150 MILLIGRAM, QD
  7. IRON [Concomitant]
     Active Substance: IRON
     Dosage: UNK UNK, Q2WEEKS
     Dates: end: 20231103
  8. FOLIC ACID [Concomitant]
     Active Substance: FOLIC ACID
     Dosage: UNK UNK, QD
  9. EPIPEN [Concomitant]
     Active Substance: EPINEPHRINE

REACTIONS (11)
  - Hyperemesis gravidarum [Unknown]
  - Dehydration [Unknown]
  - Diarrhoea [Unknown]
  - Anaphylactic reaction [Unknown]
  - Pregnancy [Recovered/Resolved]
  - Maternal exposure during breast feeding [Unknown]
  - Inflammation [Unknown]
  - Food allergy [Unknown]
  - Iron deficiency anaemia [Recovered/Resolved]
  - Anal incontinence [Unknown]
  - Defaecation urgency [Unknown]
